FAERS Safety Report 20129499 (Version 2)
Quarter: 2022Q2

REPORT INFORMATION
  Report Type: Spontaneous
  Country: CA (occurrence: None)
  Receive Date: 20211130
  Receipt Date: 20220407
  Transmission Date: 20220721
  Serious: Yes (Hospitalization)
  Sender: FDA-Public Use
  Company Number: CA-ROCHE-2964036

PATIENT
  Sex: Male

DRUGS (1)
  1. RITUXIMAB [Suspect]
     Active Substance: RITUXIMAB
     Indication: Rheumatoid arthritis
     Route: 063

REACTIONS (5)
  - Cytomegalovirus infection [Recovered/Resolved]
  - Decreased immune responsiveness [Recovered/Resolved]
  - Dyspnoea [Recovered/Resolved]
  - Rhinovirus infection [Recovered/Resolved]
  - Exposure via breast milk [Unknown]
